FAERS Safety Report 14648691 (Version 1)
Quarter: 2018Q1

REPORT INFORMATION
  Report Type: Other
  Country: GB (occurrence: GB)
  Receive Date: 20180316
  Receipt Date: 20180316
  Transmission Date: 20180509
  Serious: Yes (Other)
  Sender: FDA-Public Use
  Company Number: GB-GLENMARK PHARMACEUTICALS-2018GMK033379

PATIENT

DRUGS (1)
  1. CITALOPRAM HYDROBROMIDE. [Suspect]
     Active Substance: CITALOPRAM HYDROBROMIDE
     Indication: ANXIETY
     Dosage: 10 MG, UNK
     Route: 048
     Dates: start: 20170501, end: 20170507

REACTIONS (7)
  - Diarrhoea [Recovered/Resolved]
  - Altered state of consciousness [Unknown]
  - Confusional state [Unknown]
  - Anxiety [Unknown]
  - Agitation [Unknown]
  - Serotonin syndrome [Recovered/Resolved with Sequelae]
  - Hyperhidrosis [Unknown]

NARRATIVE: CASE EVENT DATE: 20170501
